FAERS Safety Report 17685983 (Version 1)
Quarter: 2020Q2

REPORT INFORMATION
  Report Type: Spontaneous
  Country: US (occurrence: US)
  Receive Date: 20200420
  Receipt Date: 20200420
  Transmission Date: 20200714
  Serious: Yes (Other)
  Sender: FDA-Public Use
  Company Number: US-ASTRAZENECA-2020SE51663

PATIENT
  Sex: Female

DRUGS (2)
  1. PULMICORT RESPULES [Suspect]
     Active Substance: BUDESONIDE
     Dosage: UNKNOWN
     Route: 055
  2. PRDNISOLONE [Concomitant]
     Route: 065

REACTIONS (7)
  - Growth retardation [Unknown]
  - Wrist fracture [Unknown]
  - Dental caries [Unknown]
  - Ulnar nerve injury [Unknown]
  - Fall [Unknown]
  - Foot deformity [Unknown]
  - Bone disorder [Unknown]
